FAERS Safety Report 13268501 (Version 1)
Quarter: 2017Q1

REPORT INFORMATION
  Report Type: Report from Study
  Country: CA (occurrence: CA)
  Receive Date: 20170224
  Receipt Date: 20170224
  Transmission Date: 20170428
  Serious: Yes (Other)
  Sender: FDA-Public Use
  Company Number: CA-JNJFOC-20161130637

PATIENT
  Age: 59 Year
  Sex: Female

DRUGS (1)
  1. IMBRUVICA [Suspect]
     Active Substance: IBRUTINIB
     Indication: CHRONIC LYMPHOCYTIC LEUKAEMIA
     Route: 048
     Dates: start: 20161117

REACTIONS (16)
  - Gastrointestinal haemorrhage [Unknown]
  - Diarrhoea [Recovered/Resolved]
  - Gingival disorder [Not Recovered/Not Resolved]
  - Heart rate irregular [Unknown]
  - Cough [Recovering/Resolving]
  - Gastrooesophageal reflux disease [Not Recovered/Not Resolved]
  - Faeces discoloured [Recovered/Resolved]
  - Headache [Not Recovered/Not Resolved]
  - Haemoptysis [Recovered/Resolved]
  - Nasopharyngitis [Recovering/Resolving]
  - Chromaturia [Unknown]
  - Tooth abscess [Unknown]
  - Chills [Unknown]
  - Frequent bowel movements [Recovered/Resolved]
  - Muscle spasms [Not Recovered/Not Resolved]
  - Myalgia [Recovering/Resolving]

NARRATIVE: CASE EVENT DATE: 201611
